FAERS Safety Report 6631463-9 (Version None)
Quarter: 2010Q1

REPORT INFORMATION
  Report Type: 
  Country: None (occurrence: None)
  Receive Date: 20100311
  Receipt Date: 20100311
  Transmission Date: 20100710
  Serious: Yes (Hospitalization, Other)
  Sender: FDA-Public Use
  Company Number: None

PATIENT
  Age: 82 Year
  Sex: Female
  Weight: 54.4316 kg

DRUGS (2)
  1. CIPROFLOXACIN HCL [Suspect]
     Indication: CYSTITIS
     Dosage: 1 TABLET TWICE DAILY PO
     Route: 048
     Dates: start: 20091019, end: 20091029
  2. CIPROFLOXACIN HCL [Suspect]
     Indication: CYSTITIS
     Dosage: 1 TABLET TWICE DAILY PO
     Route: 048
     Dates: start: 20100129, end: 20100207

REACTIONS (1)
  - RHEUMATOID ARTHRITIS [None]
